FAERS Safety Report 21090545 (Version 2)
Quarter: 2022Q3

REPORT INFORMATION
  Report Type: Spontaneous
  Country: DK (occurrence: DK)
  Receive Date: 20220715
  Receipt Date: 20220729
  Transmission Date: 20221027
  Serious: Yes (Other)
  Sender: FDA-Public Use
  Company Number: DK-UCBSA-2022034185

PATIENT
  Age: 59 Year
  Sex: Female
  Weight: 52 kg

DRUGS (1)
  1. EVENITY [Suspect]
     Active Substance: ROMOSOZUMAB-AQQG
     Indication: Osteoporosis
     Dosage: 210 MILLIGRAM, MONTHLY (QM)
     Route: 065
     Dates: start: 20211215

REACTIONS (1)
  - Toothache [Recovered/Resolved]

NARRATIVE: CASE EVENT DATE: 20220609
